FAERS Safety Report 21699952 (Version 2)
Quarter: 2023Q1

REPORT INFORMATION
  Report Type: Report from Study
  Country: US (occurrence: US)
  Receive Date: 20221208
  Receipt Date: 20230112
  Transmission Date: 20230417
  Serious: Yes (Other)
  Sender: FDA-Public Use
  Company Number: US-BEH-2022152050

PATIENT
  Age: 53 Year
  Sex: Female
  Weight: 158.73 kg

DRUGS (4)
  1. HIZENTRA [Suspect]
     Active Substance: HUMAN IMMUNOGLOBULIN G
     Indication: Primary immunodeficiency syndrome
     Dosage: UNK
     Route: 065
     Dates: start: 202207
  2. HIZENTRA [Suspect]
     Active Substance: HUMAN IMMUNOGLOBULIN G
     Dosage: 10 GRAM, QW
     Route: 058
     Dates: start: 202208
  3. HIZENTRA [Suspect]
     Active Substance: HUMAN IMMUNOGLOBULIN G
     Dosage: 12 GRAM, BIW
     Route: 058
     Dates: start: 20220801
  4. HIZENTRA [Suspect]
     Active Substance: HUMAN IMMUNOGLOBULIN G
     Dosage: UNK
     Route: 058
     Dates: start: 202212

REACTIONS (14)
  - Staphylococcal infection [Not Recovered/Not Resolved]
  - Nasal congestion [Not Recovered/Not Resolved]
  - Wrong schedule [Not Recovered/Not Resolved]
  - Fall [Not Recovered/Not Resolved]
  - Wrong schedule [Unknown]
  - Loss of consciousness [Unknown]
  - Wrong schedule [Not Recovered/Not Resolved]
  - Tongue ulceration [Not Recovered/Not Resolved]
  - Tongue discomfort [Not Recovered/Not Resolved]
  - Tongue disorder [Not Recovered/Not Resolved]
  - Tongue disorder [Not Recovered/Not Resolved]
  - Wrong schedule [Not Recovered/Not Resolved]
  - No adverse event [Unknown]
  - Therapy interrupted [Unknown]
